FAERS Safety Report 8045641-8 (Version None)
Quarter: 2012Q1

REPORT INFORMATION
  Report Type: 
  Country: None (occurrence: None)
  Receive Date: 20120112
  Receipt Date: 20120112
  Transmission Date: 20120608
  Serious: No
  Sender: FDA-Public Use
  Company Number: None

PATIENT
  Age: 53 Year
  Sex: Female
  Weight: 78.2 kg

DRUGS (1)
  1. FLUTICASONE PROPIONATE [Suspect]
     Indication: RHINITIS
     Dosage: 2 SPRAYS EACH NOSTRIL ONCE DAY NASAL INHALE
     Route: 055
     Dates: start: 20111208, end: 20111212

REACTIONS (2)
  - HYPOAESTHESIA [None]
  - PARAESTHESIA [None]
